FAERS Safety Report 8447953-2 (Version None)
Quarter: 2012Q2

REPORT INFORMATION
  Report Type: 
  Country: None (occurrence: None)
  Receive Date: 20120619
  Receipt Date: 20120611
  Transmission Date: 20120825
  Serious: Yes (Hospitalization)
  Sender: FDA-Public Use
  Company Number: US-ABBOTT-12P-163-0933387-00

PATIENT
  Sex: Female

DRUGS (3)
  1. HUMIRA [Suspect]
     Indication: CROHN'S DISEASE
     Route: 058
     Dates: start: 20120101, end: 20120301
  2. HUMIRA [Suspect]
     Indication: COLONIC OBSTRUCTION
  3. TPN [Concomitant]
     Indication: PRODUCT USED FOR UNKNOWN INDICATION
     Route: 042

REACTIONS (5)
  - FISTULA [None]
  - RENAL MASS [None]
  - WOUND DRAINAGE [None]
  - ABDOMINAL ABSCESS [None]
  - WEIGHT DECREASED [None]
